FAERS Safety Report 6122277-7 (Version None)
Quarter: 2009Q1

REPORT INFORMATION
  Report Type: 
  Country: None (occurrence: None)
  Receive Date: 20090318
  Receipt Date: 20090309
  Transmission Date: 20090719
  Serious: No
  Sender: FDA-Public Use
  Company Number: IE-ALLERGAN-0902343US

PATIENT
  Sex: Male

DRUGS (3)
  1. LIQUIFILM TEARS [Suspect]
     Indication: DRY EYE
     Dosage: UNK, UNKNOWN
     Route: 047
     Dates: start: 20090214, end: 20090221
  2. LIQUIFILM TEARS [Suspect]
  3. REBIF [Concomitant]
     Indication: MULTIPLE SCLEROSIS
     Dosage: 44 UG, 3 TIMES A WEEK
     Route: 058

REACTIONS (3)
  - EYE DISCHARGE [None]
  - EYE IRRITATION [None]
  - OCULAR HYPERAEMIA [None]
